FAERS Safety Report 6748637-9 (Version None)
Quarter: 2010Q2

REPORT INFORMATION
  Report Type: 
  Country: None (occurrence: None)
  Receive Date: 20100601
  Receipt Date: 20100521
  Transmission Date: 20101027
  Serious: Yes (Life-Threatening, Hospitalization)
  Sender: FDA-Public Use
  Company Number: DE-BAYER-200710990BVD

PATIENT
  Age: 53 Year
  Sex: Male
  Weight: 73 kg

DRUGS (41)
  1. SORAFENIB [Suspect]
     Indication: NON-SMALL CELL LUNG CANCER
     Dosage: TOTAL DAILY DOSE: 800 MG
     Route: 048
     Dates: start: 20070821, end: 20070910
  2. GEMCITABINE HCL [Suspect]
     Indication: NON-SMALL CELL LUNG CANCER
     Dosage: UNIT DOSE: 1250 MG/M2
     Route: 042
     Dates: start: 20070821, end: 20070821
  3. GEMCITABINE HCL [Suspect]
     Dosage: UNIT DOSE: 1250 MG/M2
     Route: 042
     Dates: start: 20070828, end: 20070828
  4. CISPLATIN [Suspect]
     Indication: NON-SMALL CELL LUNG CANCER
     Dosage: UNIT DOSE: 75 MG/M2
     Route: 042
     Dates: start: 20070821, end: 20070821
  5. PARACETAMOL [Concomitant]
     Indication: PYREXIA
     Route: 048
     Dates: start: 20070901
  6. PARACETAMOL [Concomitant]
     Route: 048
     Dates: start: 20070820, end: 20070820
  7. UNACID PD [Concomitant]
     Indication: PNEUMONIA
     Dates: start: 20070813, end: 20070821
  8. KALINOR RETARD [Concomitant]
     Indication: HYPOKALAEMIA
     Dates: start: 20070902, end: 20070904
  9. KALINOR RETARD [Concomitant]
     Dates: start: 20070816, end: 20070901
  10. KALINOR RETARD [Concomitant]
     Dates: start: 20070906, end: 20070907
  11. IBUPROFEN [Concomitant]
     Indication: PAIN
     Dates: start: 20070820, end: 20070901
  12. IBUPROFEN [Concomitant]
     Dates: start: 20070818, end: 20070819
  13. ZOFRAN [Concomitant]
     Indication: VOMITING
     Dates: start: 20070820, end: 20070820
  14. ZOFRAN [Concomitant]
     Dates: start: 20070821, end: 20070821
  15. LENDORMIN [Concomitant]
     Indication: SLEEP DISORDER
     Dates: start: 20070820, end: 20070901
  16. OXYGEN [Concomitant]
     Indication: RESPIRATORY FAILURE
     Route: 055
     Dates: start: 20070820
  17. KONAKION [Concomitant]
     Indication: COAGULOPATHY
     Dates: start: 20070901, end: 20070902
  18. POTASSIUM CHLORIDE [Concomitant]
     Indication: HYPOKALAEMIA
     Dates: start: 20070822, end: 20070823
  19. POTASSIUM CHLORIDE [Concomitant]
     Dates: start: 20070821, end: 20070821
  20. POTASSIUM CHLORIDE [Concomitant]
     Dosage: 30 MVAL
     Dates: start: 20070903, end: 20070903
  21. POTASSIUM CHLORIDE [Concomitant]
     Dosage: 20 MVAL
     Dates: start: 20070901, end: 20070902
  22. POTASSIUM CHLORIDE [Concomitant]
     Dosage: 30 MVAL
     Dates: start: 20070906, end: 20070906
  23. CALCIUM CARBONATE [Concomitant]
     Indication: HYPOCALCAEMIA
     Dates: start: 20070903, end: 20070905
  24. ISOPTIN [Concomitant]
     Indication: ATRIAL FLUTTER
     Dates: start: 20070907, end: 20070907
  25. ISOPTIN [Concomitant]
     Dates: start: 20070906, end: 20070906
  26. FALICARD [Concomitant]
     Indication: ATRIAL FLUTTER
     Dates: start: 20070906, end: 20070906
  27. CORDAREX [Concomitant]
     Indication: ATRIAL FLUTTER
     Dates: start: 20070906, end: 20070906
  28. CAPVAL [Concomitant]
     Indication: COUGH
     Dates: start: 20070906, end: 20070906
  29. FAUSTAN [Concomitant]
     Indication: AGITATION
     Dates: start: 20070906, end: 20070906
  30. TROMCARDIN [Concomitant]
     Indication: HYPOKALAEMIA
     Dates: start: 20070906, end: 20070906
  31. FORTUM [Concomitant]
     Indication: INFECTION PROPHYLAXIS
     Dates: start: 20070907, end: 20070907
  32. FORTUM [Concomitant]
     Dates: start: 20070908, end: 20070914
  33. TRYASOL [Concomitant]
     Indication: COUGH
     Dates: start: 20070907, end: 20070910
  34. TRYASOL [Concomitant]
     Dates: start: 20070909, end: 20070909
  35. METOPROLOL TARTRATE [Concomitant]
     Indication: ATRIAL FLUTTER
     Dates: start: 20070907, end: 20070908
  36. METOPROLOL SUCCINATE [Concomitant]
     Indication: ATRIAL FLUTTER
     Dates: start: 20070907, end: 20070907
  37. DIGITOXIN [Concomitant]
     Indication: ATRIAL FLUTTER
     Dates: start: 20070908
  38. DIGITOXIN [Concomitant]
     Dates: start: 20070907, end: 20070908
  39. KALINOR [Concomitant]
     Indication: HYPOKALAEMIA
     Dates: start: 20070908, end: 20070908
  40. BERLOSIN [Concomitant]
     Indication: PYREXIA
     Dates: start: 20070908, end: 20070908
  41. ENOXAPARIN SODIUM [Concomitant]
     Indication: PROPHYLAXIS
     Dates: start: 20070909

REACTIONS (5)
  - ANAEMIA [None]
  - NEUTROPENIA [None]
  - PNEUMONIA [None]
  - SEPSIS [None]
  - THROMBOCYTOPENIA [None]
